FAERS Safety Report 4454135-8 (Version None)
Quarter: 2004Q3

REPORT INFORMATION
  Report Type: 
  Country: None (occurrence: None)
  Receive Date: 20040826
  Receipt Date: 20040507
  Transmission Date: 20050211
  Serious: No
  Sender: FDA-Public Use
  Company Number: WAES 0405USA00511

PATIENT
  Age: 71 Year
  Sex: Male

DRUGS (8)
  1. ZETIA [Suspect]
     Indication: HYPERCHOLESTEROLAEMIA
     Dosage: 10 MG/DAILY/PO
     Route: 048
     Dates: start: 20040505, end: 20040506
  2. ACCUPRIL [Concomitant]
  3. DEPAKOTE [Concomitant]
  4. HYDRODIURIL [Concomitant]
  5. PEPCID [Concomitant]
  6. PHENERGAN TABLETS/SUPPOSITORIES [Concomitant]
  7. REGLAN [Concomitant]
  8. ATENOLOL [Concomitant]

REACTIONS (3)
  - KIDNEY INFECTION [None]
  - PROSTATIC DISORDER [None]
  - PROTEIN URINE PRESENT [None]
